FAERS Safety Report 13847450 (Version 2)
Quarter: 2017Q3

REPORT INFORMATION
  Report Type: Spontaneous
  Country: PT (occurrence: PT)
  Receive Date: 20170808
  Receipt Date: 20170810
  Transmission Date: 20171127
  Serious: Yes (Other)
  Sender: FDA-Public Use
  Company Number: PT-009507513-1708PRT001281

PATIENT
  Age: 21 Year
  Sex: Female

DRUGS (4)
  1. RILPIVIRINE [Concomitant]
     Active Substance: RILPIVIRINE
  2. DARUNAVIR [Concomitant]
     Active Substance: DARUNAVIR
  3. TRUVADA [Concomitant]
     Active Substance: EMTRICITABINE\TENOFOVIR DISOPROXIL FUMARATE
  4. ISENTRESS [Suspect]
     Active Substance: RALTEGRAVIR POTASSIUM
     Route: 048

REACTIONS (3)
  - Vomiting [Unknown]
  - Maternal exposure during pregnancy [Recovered/Resolved]
  - Viral load increased [Unknown]
